FAERS Safety Report 7645620-6 (Version None)
Quarter: 2011Q3

REPORT INFORMATION
  Report Type: 
  Country: None (occurrence: None)
  Receive Date: 20110729
  Receipt Date: 20110725
  Transmission Date: 20111222
  Serious: Yes (Life-Threatening, Hospitalization)
  Sender: FDA-Public Use
  Company Number: PL-UCBSA-8049087

PATIENT
  Sex: Female
  Weight: 54 kg

DRUGS (9)
  1. ENCORTON [Concomitant]
     Indication: RHEUMATOID ARTHRITIS
     Route: 048
     Dates: start: 20050712, end: 20090624
  2. FOLIC ACID [Concomitant]
     Indication: PROPHYLAXIS
     Route: 048
     Dates: start: 20050210, end: 20090624
  3. ATENOLOL [Concomitant]
     Indication: HYPERTENSION
     Route: 048
     Dates: start: 20010101, end: 20090624
  4. TERTENSIF SR [Concomitant]
     Indication: HYPERTENSION
     Route: 048
     Dates: start: 20050712, end: 20090624
  5. POLPRAZOL [Concomitant]
     Indication: PROPHYLAXIS AGAINST GASTROINTESTINAL ULCER
     Route: 048
     Dates: start: 20050209, end: 20090624
  6. CERTOLIZUMAB PEGOL [Suspect]
     Indication: RHEUMATOID ARTHRITIS
     Route: 058
     Dates: start: 20060118, end: 20060706
  7. METHOTREXATE [Concomitant]
     Indication: RHEUMATOID ARTHRITIS
     Route: 048
     Dates: start: 20050901, end: 20060624
  8. AMLOZEK [Concomitant]
     Indication: HYPERTENSION
     Route: 048
     Dates: start: 20050712, end: 20090624
  9. CERTOLIZUMAB PEGOL [Suspect]
     Route: 058
     Dates: start: 20060706, end: 20090616

REACTIONS (2)
  - PNEUMOCOCCAL SEPSIS [None]
  - PNEUMONIA PNEUMOCOCCAL [None]
